FAERS Safety Report 7655921-3 (Version None)
Quarter: 2011Q3

REPORT INFORMATION
  Report Type: 
  Country: None (occurrence: None)
  Receive Date: 20110804
  Receipt Date: 20110804
  Transmission Date: 20111222
  Serious: No
  Sender: FDA-Public Use
  Company Number: None

PATIENT
  Age: 58 Year
  Sex: Male
  Weight: 97.522 kg

DRUGS (1)
  1. ZICAM (OTC) SWABS [Suspect]
     Indication: NASOPHARYNGITIS
     Dates: start: 20080115, end: 20080118

REACTIONS (3)
  - HYPOGEUSIA [None]
  - RHINALGIA [None]
  - ANOSMIA [None]
